FAERS Safety Report 5599352-9 (Version None)
Quarter: 2008Q1

REPORT INFORMATION
  Report Type: 
  Country: None (occurrence: None)
  Receive Date: 20080122
  Receipt Date: 20080110
  Transmission Date: 20080703
  Serious: Yes (Other)
  Sender: FDA-Public Use
  Company Number: US-PFIZER INC-2008003444

PATIENT
  Sex: Female
  Weight: 59.4 kg

DRUGS (10)
  1. TIKOSYN [Suspect]
     Indication: ATRIAL FIBRILLATION
     Route: 048
  2. ACIPHEX [Concomitant]
  3. COUMADIN [Concomitant]
  4. LASIX [Concomitant]
  5. METOPROLOL SUCCINATE [Concomitant]
  6. SYNTHROID [Concomitant]
  7. DIGITEK [Concomitant]
  8. NIFEDIPINE [Concomitant]
  9. POTASSIUM CHLORIDE [Concomitant]
  10. MONTELUKAST SODIUM [Concomitant]

REACTIONS (3)
  - ARTHRALGIA [None]
  - BLOOD CREATININE INCREASED [None]
  - GLOMERULAR FILTRATION RATE DECREASED [None]
